FAERS Safety Report 8555098-6 (Version None)
Quarter: 2012Q3

REPORT INFORMATION
  Report Type: 
  Country: None (occurrence: None)
  Receive Date: 20120731
  Receipt Date: 20120723
  Transmission Date: 20120928
  Serious: Yes (Other)
  Sender: FDA-Public Use
  Company Number: IE-BAXTER-2012BAX009665

PATIENT
  Age: 23 Year
  Sex: Male

DRUGS (1)
  1. KIOVIG [Suspect]
     Route: 042
     Dates: start: 20120505, end: 20120505

REACTIONS (2)
  - CHILLS [None]
  - BODY TEMPERATURE NORMAL [None]
